FAERS Safety Report 23320973 (Version 1)
Quarter: 2023Q4

REPORT INFORMATION
  Report Type: Spontaneous
  Country: US (occurrence: US)
  Receive Date: 20231220
  Receipt Date: 20231220
  Transmission Date: 20240110
  Serious: No
  Sender: FDA-Public Use
  Company Number: US-GSKCCFUS-Case-01800826_AE-100906

PATIENT

DRUGS (2)
  1. BREXAFEMME [Suspect]
     Active Substance: IBREXAFUNGERP CITRATE
     Indication: Product used for unknown indication
     Dosage: 150 MG, BID (12 HOURS)
  2. BREXAFEMME [Suspect]
     Active Substance: IBREXAFUNGERP CITRATE
     Dosage: 300 MG, BID (12 HOURS)

REACTIONS (1)
  - Inappropriate schedule of product administration [Unknown]
